FAERS Safety Report 9291160 (Version 1)
Quarter: 2013Q2

REPORT INFORMATION
  Report Type: Report from Study
  Country: AR (occurrence: AR)
  Receive Date: 20130515
  Receipt Date: 20130515
  Transmission Date: 20140414
  Serious: Yes (Hospitalization, Other)
  Sender: FDA-Public Use
  Company Number: PHHY2013AR048376

PATIENT
  Sex: Female

DRUGS (3)
  1. DIOVAN [Suspect]
     Indication: HYPERTENSION
     Dosage: 80 MG
     Route: 048
     Dates: start: 2007, end: 2008
  2. DIOVAN [Suspect]
     Dosage: 160 MG
     Route: 048
     Dates: start: 2008, end: 200911
  3. DIOVAN [Suspect]
     Dosage: 320 MG
     Route: 048
     Dates: start: 200911, end: 201304

REACTIONS (8)
  - Device failure [Recovered/Resolved]
  - Accidental poisoning [Recovered/Resolved]
  - Retinal detachment [Recovering/Resolving]
  - Blindness [Recovering/Resolving]
  - Fall [Recovered/Resolved with Sequelae]
  - Limb injury [Recovered/Resolved with Sequelae]
  - Haematoma [Recovered/Resolved]
  - Blood glucose increased [Recovered/Resolved]
